FAERS Safety Report 4287525-7 (Version None)
Quarter: 2004Q1

REPORT INFORMATION
  Report Type: 
  Country: None (occurrence: None)
  Receive Date: 20040209
  Receipt Date: 20030716
  Transmission Date: 20041129
  Serious: Yes (Hospitalization, Other)
  Sender: FDA-Public Use
  Company Number: US-GLAXOSMITHKLINE-A0416903A

PATIENT
  Age: 26 Year
  Sex: Female

DRUGS (4)
  1. PAXIL CR [Suspect]
     Indication: PANIC ATTACK
     Route: 048
  2. HYDROCHLOROTHIAZIDE [Concomitant]
  3. PROPRANOLOL [Concomitant]
  4. ZOCOR [Concomitant]

REACTIONS (3)
  - BLOOD PRESSURE INCREASED [None]
  - DRUG WITHDRAWAL SYNDROME [None]
  - PALPITATIONS [None]
